FAERS Safety Report 23904434 (Version 3)
Quarter: 2024Q3

REPORT INFORMATION
  Report Type: Spontaneous
  Country: DE (occurrence: DE)
  Receive Date: 20240527
  Receipt Date: 20240816
  Transmission Date: 20241017
  Serious: Yes (Other)
  Sender: ROCHE
  Company Number: DE-002147023-NVSC2024DE104543

PATIENT
  Sex: Female

DRUGS (4)
  1. XOLAIR [Suspect]
     Active Substance: OMALIZUMAB
     Indication: Chronic spontaneous urticaria
     Dosage: 300 MG, Q4W
     Route: 065
     Dates: start: 202403
  2. XOLAIR [Suspect]
     Active Substance: OMALIZUMAB
     Indication: Angioedema
  3. FEXOFENADINE [Concomitant]
     Active Substance: FEXOFENADINE HYDROCHLORIDE
     Indication: Product used for unknown indication
     Dosage: 180 MG, QID (TOTAL DOSE)
     Route: 065
  4. FEXOFENADINE [Concomitant]
     Active Substance: FEXOFENADINE HYDROCHLORIDE
     Dosage: 180 MG, QID (TOTAL DOSE)

REACTIONS (2)
  - Angioedema [Not Recovered/Not Resolved]
  - Urticaria [Not Recovered/Not Resolved]

NARRATIVE: CASE EVENT DATE: 20240512
